FAERS Safety Report 9309065 (Version 1)
Quarter: 2013Q2

REPORT INFORMATION
  Report Type: Spontaneous
  Country: JP (occurrence: JP)
  Receive Date: 20130525
  Receipt Date: 20130525
  Transmission Date: 20140414
  Serious: Yes (Hospitalization)
  Sender: FDA-Public Use
  Company Number: JP-009507513-1305JPN013609

PATIENT
  Age: 74 Year
  Sex: 0

DRUGS (1)
  1. BETAMETHASONE SODIUM PHOSPHATE [Suspect]
     Indication: POLYMYALGIA RHEUMATICA
     Dosage: 1 MG, QD
     Route: 048
     Dates: start: 200912

REACTIONS (1)
  - Disseminated tuberculosis [Unknown]
